FAERS Safety Report 9295544 (Version 1)
Quarter: 2013Q1

REPORT INFORMATION
  Report Type: Spontaneous
  Country: US (occurrence: None)
  Receive Date: 20130103
  Receipt Date: 20130103
  Transmission Date: 20140127
  Serious: Yes (Other)
  Sender: FDA-Public Use
  Company Number: DSA_48380_2011

PATIENT
  Sex: Male

DRUGS (7)
  1. XENAZINE (NOT SPECIFIED) [Suspect]
     Indication: HUNTINGTON^S DISEASE
     Route: 048
     Dates: start: 20111019, end: 2011
  2. ASPIRIN [Concomitant]
  3. CELEXA [Concomitant]
  4. FINASTERIDE [Concomitant]
  5. PRILOSEC /00661201/ [Concomitant]
  6. TAMSULOSIN [Concomitant]
  7. KEPPRA [Concomitant]

REACTIONS (1)
  - Somnolence [None]
